FAERS Safety Report 8286892-7 (Version None)
Quarter: 2012Q2

REPORT INFORMATION
  Report Type: 
  Country: None (occurrence: None)
  Receive Date: 20120416
  Receipt Date: 20120403
  Transmission Date: 20120825
  Serious: Yes (Death, Life-Threatening, Hospitalization, Other)
  Sender: FDA-Public Use
  Company Number: DE-CELGENEUS-062-50794-09110002

PATIENT
  Age: 76 Year
  Sex: Female
  Weight: 52 kg

DRUGS (19)
  1. DIMENHYDRINAT [Concomitant]
     Indication: VOMITING
     Route: 041
     Dates: start: 20091102
  2. OMEPRAZOLE [Concomitant]
     Route: 041
     Dates: start: 20091001
  3. VIDAZA [Suspect]
     Dosage: 56.25 MILLIGRAM
     Route: 041
     Dates: start: 20091015, end: 20091019
  4. NEXIUM [Concomitant]
     Indication: PROPHYLAXIS
     Route: 065
     Dates: start: 20091015
  5. ENOXAPARIN SODIUM [Concomitant]
     Indication: THROMBOSIS PROPHYLAXIS
     Route: 065
     Dates: start: 20091015
  6. LASIX [Concomitant]
     Indication: OEDEMA
     Route: 041
     Dates: start: 20091104
  7. HEPARIN [Concomitant]
     Indication: THROMBOSIS PROPHYLAXIS
     Route: 041
     Dates: start: 20091015
  8. ACYCLOVIR [Concomitant]
     Indication: ANTIVIRAL PROPHYLAXIS
     Route: 065
     Dates: start: 20091015
  9. TARGOCID [Concomitant]
     Route: 041
     Dates: start: 20091108
  10. KONAKION [Concomitant]
     Route: 041
     Dates: start: 20091102
  11. NEUPOGEN [Concomitant]
     Indication: NEUTROPENIA
     Route: 041
     Dates: start: 20091109
  12. LEVOTHYROXINE SODIUM [Concomitant]
     Indication: HYPOTHYROIDISM
     Route: 041
     Dates: start: 20091015
  13. DIFLUCAN [Concomitant]
     Indication: NEUTROPENIA
     Route: 041
     Dates: start: 20091015
  14. DELIX [Concomitant]
     Indication: HYPERTENSION
     Route: 065
     Dates: start: 20091015
  15. CYTARABINE [Concomitant]
     Route: 041
  16. DAUNORUBICIN HCL [Concomitant]
     Route: 041
  17. MEROPENEM [Concomitant]
     Route: 041
     Dates: start: 20091106
  18. LEVOFLOXACIN [Concomitant]
     Indication: NEUTROPENIA
     Route: 065
     Dates: start: 20091015
  19. VERGENTAN [Concomitant]
     Indication: VOMITING
     Route: 041
     Dates: start: 20091108

REACTIONS (26)
  - GENERAL PHYSICAL HEALTH DETERIORATION [None]
  - CEREBROVASCULAR ACCIDENT [None]
  - SKIN FISSURES [None]
  - COUGH [None]
  - LOSS OF CONSCIOUSNESS [None]
  - NAUSEA [None]
  - THROMBOCYTOPENIA [None]
  - ABDOMINAL DISTENSION [None]
  - NEUTROPENIA [None]
  - HAEMATURIA [None]
  - OEDEMA PERIPHERAL [None]
  - HYPERTENSION [None]
  - VOMITING [None]
  - RALES [None]
  - ENCEPHALITIS [None]
  - PRURITUS [None]
  - TACHYCARDIA [None]
  - DYSPNOEA [None]
  - LEUKOPENIA [None]
  - URINARY INCONTINENCE [None]
  - DRY SKIN [None]
  - DIARRHOEA [None]
  - DECREASED APPETITE [None]
  - FAECAL INCONTINENCE [None]
  - PYREXIA [None]
  - RASH [None]
